FAERS Safety Report 17354893 (Version 2)
Quarter: 2020Q1

REPORT INFORMATION
  Report Type: Spontaneous
  Country: US (occurrence: US)
  Receive Date: 20200131
  Receipt Date: 20200302
  Transmission Date: 20200409
  Serious: No
  Sender: FDA-Public Use
  Company Number: US-PFIZER INC-2020041321

PATIENT
  Age: 64 Year
  Sex: Male
  Weight: 106.6 kg

DRUGS (29)
  1. ASPIRIN 81 [Concomitant]
     Active Substance: ASPIRIN
     Dosage: 81 MG, 1X/DAY(TAKE 1 TABLET IN THE EVENING)
  2. CATAPRES [Concomitant]
     Active Substance: CLONIDINE HYDROCHLORIDE
     Dosage: 0.3 MG, 3X/DAY
     Route: 048
  3. NOVOLOG [Concomitant]
     Active Substance: INSULIN ASPART
     Dosage: UNK UNK, 3X/DAY( INJECT 2 UNITES UNDER THE SKIN 3 TIMES A DAY BEFORE MEALS)
     Route: 058
  4. MYCOSTATIN [Concomitant]
     Active Substance: NYSTATIN
     Indication: RASH
     Dosage: UNK, AS NEEDED (APPLY TOPICALLY 3(THREE) TIMES A DAY AS NEEDED)
     Route: 061
  5. LIQUITEARS [Concomitant]
     Active Substance: POLYVINYL ALCOHOL
     Dosage: UNK(1 DROP)
  6. ZESTRIL [Concomitant]
     Active Substance: LISINOPRIL
     Dosage: 20 MG, 2X/DAY (TAKE 1 TABLET(20 MG TOTAL) BY MOUTH 2 (TWO) TIMES A DAY)
     Route: 048
  7. XELJANZ [Suspect]
     Active Substance: TOFACITINIB CITRATE
     Indication: RHEUMATOID ARTHRITIS
     Dosage: 5 MG, 2X/DAY
     Route: 048
     Dates: start: 201904, end: 201905
  8. NORVASC [Concomitant]
     Active Substance: AMLODIPINE BESYLATE
     Dosage: 5 MG, DAILY
     Route: 048
  9. LASIX [Concomitant]
     Active Substance: FUROSEMIDE
     Dosage: 20 MG, DAILY
     Route: 048
  10. PLAQUENIL [Concomitant]
     Active Substance: HYDROXYCHLOROQUINE SULFATE
     Dosage: 200 MG, 2X/DAY
     Route: 048
  11. PRINIVIL [Concomitant]
     Active Substance: LISINOPRIL
     Dosage: 20 MG, 2X/DAY
     Route: 048
  12. MAG-OX [Concomitant]
     Active Substance: MAGNESIUM OXIDE
     Dosage: 400 MG, 2X/DAY
     Route: 048
  13. PROTONIX [Concomitant]
     Active Substance: PANTOPRAZOLE SODIUM
     Dosage: 40 MG, 1X/DAY(TAKE 1 TABLET EVERY MORNING)
  14. TYLENOL [Concomitant]
     Active Substance: ACETAMINOPHEN
     Dosage: 650 MG, AS NEEDED (650 MG EVERY 4 (FOUR) HOURS AS NEEDED)
  15. PRAVACHOL [Concomitant]
     Active Substance: PRAVASTATIN SODIUM
     Dosage: 40 MG, 1X/DAY(TAKE 1 TABLET IN THE EVENING)
  16. ZOLOFT [Concomitant]
     Active Substance: SERTRALINE HYDROCHLORIDE
     Dosage: 100 MG, 2X/DAY(TAKE 1 TABLET EVERY MORNING AND EVENING)
  17. AZULFIDINE [Concomitant]
     Active Substance: SULFASALAZINE
     Dosage: 1000 MG, 3X/DAY(TWO TABLETS 3 TIMES DAILY)
  18. ULTRAM [Concomitant]
     Active Substance: TRAMADOL HYDROCHLORIDE
     Indication: PAIN
     Dosage: 50 MG, AS NEEDED(TAKE 50 MG BY MOUTH EVERY 6 HOURS AS NEEDED)
     Route: 048
  19. KENALOG [Concomitant]
     Active Substance: TRIAMCINOLONE ACETONIDE
     Dosage: UNK, 2X/DAY(APPLY 1 APPLICATION TOPICALLY 2 TIMES A DAY)
     Route: 061
  20. THERAGRAN [ASCORBIC ACID;CALCIUM PANTOTHENATE;CYANOCOBALAMIN;ERGOCALCI [Concomitant]
     Dosage: 1 DF, DAILY
     Route: 048
  21. XELJANZ [Suspect]
     Active Substance: TOFACITINIB CITRATE
     Indication: RHEUMATOID FACTOR POSITIVE
     Dosage: 5 MG, 1X/DAY
  22. BUSPAR [Concomitant]
     Active Substance: BUSPIRONE HYDROCHLORIDE
     Dosage: 10 MG, 2X/DAY(TAKE 1 TABLET EVERY MORNING AND EVENING)
     Route: 048
  23. COREG [Concomitant]
     Active Substance: CARVEDILOL
     Dosage: 25 MG, 2X/DAY
     Route: 048
  24. PLAQUENIL [Concomitant]
     Active Substance: HYDROXYCHLOROQUINE SULFATE
     Dosage: 400 MG, DAILY
  25. COLCRYS [Concomitant]
     Active Substance: COLCHICINE
     Dosage: 0.6 MG, 1X/DAY(TAKE 1 TABLET EVERY MORNING)
  26. BASAGLAR [Concomitant]
     Active Substance: INSULIN GLARGINE
     Dosage: 100 IU/ML, DAILY(INJECT 35 UNITS UNDER THE SKIN DAILY)
     Route: 058
  27. XELJANZ [Suspect]
     Active Substance: TOFACITINIB CITRATE
     Dosage: 5 MG, 2X/DAY
     Route: 048
     Dates: start: 20190716
  28. AZULFIDINE [Concomitant]
     Active Substance: SULFASALAZINE
     Dosage: UNK, DAILY(6 TABLET DAILY)
  29. EPIPEN [Concomitant]
     Active Substance: EPINEPHRINE
     Dosage: 0.3 MG, AS NEEDED(INJECT 0.3 MG INTO THE APPROPRIATE MUSCLE AS NEEDED)
     Route: 030

REACTIONS (3)
  - Nasopharyngitis [Unknown]
  - Arthritis [Unknown]
  - Arthralgia [Unknown]
